FAERS Safety Report 23547533 (Version 2)
Quarter: 2024Q1

REPORT INFORMATION
  Report Type: Spontaneous
  Country: GB (occurrence: None)
  Receive Date: 20240221
  Receipt Date: 20240322
  Transmission Date: 20240410
  Serious: Yes (Hospitalization, Other)
  Sender: FDA-Public Use
  Company Number: GB-Unichem Pharmaceuticals (USA) Inc-UCM202402-000152

PATIENT
  Age: 2 Year
  Sex: Male
  Weight: 20 kg

DRUGS (1)
  1. PHENYTOIN SODIUM [Suspect]
     Active Substance: PHENYTOIN SODIUM
     Indication: Status epilepticus
     Dosage: LOADING DOSE OF 20 MG/KG OVER 20 MINUTES
     Route: 042

REACTIONS (1)
  - Purple glove syndrome [Recovered/Resolved]
